FAERS Safety Report 15010699 (Version 1)
Quarter: 2018Q2

REPORT INFORMATION
  Report Type: Spontaneous
  Country: AU (occurrence: AU)
  Receive Date: 20180614
  Receipt Date: 20180614
  Transmission Date: 20180711
  Serious: Yes (Other)
  Sender: FDA-Public Use
  Company Number: AU-B.I. PHARMACEUTICALS,INC./RIDGEFIELD-2018-BI-030011

PATIENT
  Age: 86 Year
  Sex: Male

DRUGS (5)
  1. ROSUVASTASTIN [Concomitant]
     Indication: PRODUCT USED FOR UNKNOWN INDICATION
     Route: 065
  2. SINIMET (CARBIDOPA/LEVODOPA) [Concomitant]
     Indication: PRODUCT USED FOR UNKNOWN INDICATION
     Route: 065
  3. PANADOL [Concomitant]
     Active Substance: ACETAMINOPHEN
     Indication: PRODUCT USED FOR UNKNOWN INDICATION
     Route: 065
  4. MICARDIS [Suspect]
     Active Substance: TELMISARTAN
     Indication: PRODUCT USED FOR UNKNOWN INDICATION
     Route: 065
  5. CLOPIDOGREL [Concomitant]
     Active Substance: CLOPIDOGREL BISULFATE
     Indication: PRODUCT USED FOR UNKNOWN INDICATION
     Route: 065

REACTIONS (11)
  - Hyperhidrosis [Unknown]
  - Dyspnoea [Unknown]
  - Heart sounds abnormal [Unknown]
  - Chest pain [Unknown]
  - Orthopnoea [Unknown]
  - Rales [Unknown]
  - Respiratory rate increased [Unknown]
  - Venous pressure jugular increased [Unknown]
  - Chest pain [Recovered/Resolved]
  - Cardiac failure [Unknown]
  - Dyspnoea paroxysmal nocturnal [Unknown]
